FAERS Safety Report 4424551-9 (Version None)
Quarter: 2004Q3

REPORT INFORMATION
  Report Type: 
  Country: None (occurrence: None)
  Receive Date: 20040812
  Receipt Date: 20040803
  Transmission Date: 20050211
  Serious: Yes (Hospitalization)
  Sender: FDA-Public Use
  Company Number: PHEH2004US08415

PATIENT
  Age: 68 Year
  Sex: Female
  Weight: 73 kg

DRUGS (2)
  1. FEMARA [Suspect]
     Indication: BREAST CANCER METASTATIC
     Dosage: 2.5 MG, QD
     Route: 048
     Dates: start: 20040719, end: 20040725
  2. DANAZOL [Concomitant]

REACTIONS (2)
  - HAEMORRHAGE [None]
  - IDIOPATHIC THROMBOCYTOPENIC PURPURA [None]
